FAERS Safety Report 20612166 (Version 1)
Quarter: 2022Q1

REPORT INFORMATION
  Report Type: Spontaneous
  Country: US (occurrence: None)
  Receive Date: 20220318
  Receipt Date: 20220318
  Transmission Date: 20220423
  Serious: Yes (Hospitalization)
  Sender: FDA-Public Use
  Company Number: None

PATIENT
  Sex: Male

DRUGS (1)
  1. ESBRIET [Suspect]
     Active Substance: PIRFENIDONE
     Indication: Idiopathic pulmonary fibrosis
     Dosage: TAKE 3 TABLETS BY MOUTH 3 TIMES DAILY (WITH MEALS).
     Route: 048
     Dates: start: 20190219

REACTIONS (4)
  - Nephrolithiasis [None]
  - Nausea [None]
  - Stent placement [None]
  - Therapy interrupted [None]
